FAERS Safety Report 5039967-X (Version None)
Quarter: 2006Q2

REPORT INFORMATION
  Report Type: 
  Country: None (occurrence: None)
  Receive Date: 20060630
  Receipt Date: 20060601
  Transmission Date: 20061013
  Serious: Yes (Death, Other)
  Sender: FDA-Public Use
  Company Number: US-AMGEN-STX181589

PATIENT
  Sex: Male
  Weight: 95.3 kg

DRUGS (6)
  1. ENBREL [Suspect]
     Indication: RHEUMATOID ARTHRITIS
     Dates: start: 19980101, end: 20060401
  2. HYDROCHLOROTHIAZIDE [Concomitant]
  3. POTASSIUM [Concomitant]
  4. ATENOLOL [Concomitant]
  5. PREDNISONE [Concomitant]
     Dates: start: 19990101, end: 20060401
  6. SALSALATE [Concomitant]

REACTIONS (3)
  - DIABETES MELLITUS [None]
  - HEPATIC NEOPLASM MALIGNANT [None]
  - PANCREATIC CARCINOMA METASTATIC [None]
